FAERS Safety Report 5096575-2 (Version None)
Quarter: 2006Q3

REPORT INFORMATION
  Report Type: 
  Country: None (occurrence: None)
  Receive Date: 20060830
  Receipt Date: 20060817
  Transmission Date: 20061208
  Serious: Yes (Other)
  Sender: FDA-Public Use
  Company Number: 2006101373

PATIENT
  Sex: Female

DRUGS (1)
  1. DOSTINEX [Suspect]
     Indication: LACTATION PUERPERAL INCREASED
     Dosage: 1 MG (0.5 MG, 1 IN 1 D), ORAL
     Route: 048
     Dates: start: 20060814, end: 20060814

REACTIONS (4)
  - DYSPNOEA [None]
  - FATIGUE [None]
  - INSOMNIA [None]
  - NECK PAIN [None]
